FAERS Safety Report 13543784 (Version 2)
Quarter: 2017Q3

REPORT INFORMATION
  Report Type: Report from Study
  Country: None (occurrence: US)
  Receive Date: 20170515
  Receipt Date: 20170824
  Transmission Date: 20171127
  Serious: Yes (Hospitalization, Other)
  Sender: FDA-Public Use
  Company Number: US-ABBVIE-17K-163-1973996-00

PATIENT
  Sex: Male
  Weight: 108.96 kg

DRUGS (6)
  1. XIFAXAN [Concomitant]
     Active Substance: RIFAXIMIN
     Indication: IRRITABLE BOWEL SYNDROME
  2. PANTOPRAZOLE [Concomitant]
     Active Substance: PANTOPRAZOLE
     Indication: PRODUCT USED FOR UNKNOWN INDICATION
  3. OMEPRAZOLE. [Concomitant]
     Active Substance: OMEPRAZOLE
     Indication: GASTROOESOPHAGEAL REFLUX DISEASE
  4. HUMIRA [Suspect]
     Active Substance: ADALIMUMAB
     Indication: CROHN^S DISEASE
     Route: 058
     Dates: start: 2015
  5. LACTULOSE. [Concomitant]
     Active Substance: LACTULOSE
     Indication: PRODUCT USED FOR UNKNOWN INDICATION
  6. CYMBALTA [Concomitant]
     Active Substance: DULOXETINE HYDROCHLORIDE
     Indication: GASTROOESOPHAGEAL REFLUX DISEASE

REACTIONS (7)
  - Disturbance in attention [Unknown]
  - Asthenia [Recovered/Resolved]
  - Confusional state [Unknown]
  - Varices oesophageal [Unknown]
  - Hepatic encephalopathy [Not Recovered/Not Resolved]
  - Gastroenteritis [Unknown]
  - Portal hypertension [Unknown]
